FAERS Safety Report 5169265-5 (Version None)
Quarter: 2006Q4

REPORT INFORMATION
  Report Type: 
  Country: None (occurrence: None)
  Receive Date: 20061211
  Receipt Date: 20061030
  Transmission Date: 20070319
  Serious: Yes (Other)
  Sender: FDA-Public Use
  Company Number: US-AMGEN-US198671

PATIENT
  Sex: Female

DRUGS (6)
  1. PANITUMUMAB [Suspect]
     Indication: COLORECTAL CANCER
     Route: 042
     Dates: start: 20060725
  2. AVASTIN [Concomitant]
     Route: 042
  3. IRINOTECAN HCL [Concomitant]
     Route: 042
  4. LEUCOVORIN CALCIUM [Concomitant]
     Route: 042
  5. FLUOROURACIL [Concomitant]
     Route: 042
  6. COUMADIN [Concomitant]

REACTIONS (3)
  - CONJUNCTIVAL HAEMORRHAGE [None]
  - ECTROPION [None]
  - INTERNATIONAL NORMALISED RATIO INCREASED [None]
